FAERS Safety Report 6548742-6 (Version None)
Quarter: 2010Q1

REPORT INFORMATION
  Report Type: 
  Country: None (occurrence: None)
  Receive Date: 20100124
  Receipt Date: 20091106
  Transmission Date: 20100710
  Serious: No
  Sender: FDA-Public Use
  Company Number: US-ALLERGAN-0915402US

PATIENT
  Age: 88 Year
  Sex: Male

DRUGS (6)
  1. RESTASIS [Suspect]
     Indication: DRY EYE
     Dosage: 1 GTT, SINGLE
     Route: 047
     Dates: start: 20090501, end: 20090501
  2. TRANDATE [Concomitant]
     Indication: HYPERTENSION
  3. PREDNISONE [Concomitant]
     Indication: IDIOPATHIC THROMBOCYTOPENIC PURPURA
  4. REFRESH TEARS [Concomitant]
     Indication: DRY EYE
     Dosage: Q 3-4 HR
     Route: 047
  5. REFRESH TEARS [Concomitant]
     Dosage: Q 2 HR
     Route: 047
  6. REFRESH TEARS [Concomitant]
     Dosage: LESS
     Route: 047

REACTIONS (1)
  - EYE IRRITATION [None]
